FAERS Safety Report 12065312 (Version 1)
Quarter: 2016Q1

REPORT INFORMATION
  Report Type: Spontaneous
  Country: US (occurrence: US)
  Receive Date: 20160210
  Receipt Date: 20160210
  Transmission Date: 20160526
  Serious: No
  Sender: FDA-Public Use
  Company Number: US-ALLERGAN-1509642US

PATIENT
  Sex: Female

DRUGS (1)
  1. BOTOX COSMETIC [Suspect]
     Active Substance: ONABOTULINUMTOXINA
     Indication: VOCAL CORD DISORDER
     Dosage: 1.25 UNITS, SINGLE
     Route: 030
     Dates: start: 20150420, end: 20150420

REACTIONS (2)
  - Off label use [Unknown]
  - Drug ineffective [Unknown]
